FAERS Safety Report 18514565 (Version 1)
Quarter: 2020Q4

REPORT INFORMATION
  Report Type: Report from Study
  Country: None (occurrence: DE)
  Receive Date: 20201117
  Receipt Date: 20201117
  Transmission Date: 20210114
  Serious: Yes (Death)
  Sender: FDA-Public Use
  Company Number: DE-ABBVIE-20K-062-3650558-00

PATIENT
  Sex: Male

DRUGS (3)
  1. VENCLYXTO [Suspect]
     Active Substance: VENETOCLAX
     Indication: CHRONIC LYMPHOCYTIC LEUKAEMIA
     Route: 048
  2. CYTARABIN [Suspect]
     Active Substance: CYTARABINE
     Indication: PRODUCT USED FOR UNKNOWN INDICATION
     Route: 065
  3. VENCLYXTO [Suspect]
     Active Substance: VENETOCLAX
     Indication: ACUTE MYELOID LEUKAEMIA

REACTIONS (12)
  - Unevaluable event [Unknown]
  - Depression [Unknown]
  - Abdominal pain upper [Unknown]
  - Asthenia [Unknown]
  - Apathy [Unknown]
  - Off label use [Unknown]
  - Nausea [Unknown]
  - Depressed mood [Unknown]
  - Death [Fatal]
  - Blast cell count increased [Unknown]
  - Overdose [Unknown]
  - Vomiting [Unknown]

NARRATIVE: CASE EVENT DATE: 20190616
